FAERS Safety Report 24305658 (Version 1)
Quarter: 2024Q3

REPORT INFORMATION
  Report Type: Spontaneous
  Country: US (occurrence: US)
  Receive Date: 20240911
  Receipt Date: 20240911
  Transmission Date: 20241016
  Serious: No
  Sender: ZYDUS PHARM
  Company Number: US-CADILA HEALTHCARE LIMITED-US-ZYDUS-109292

PATIENT

DRUGS (2)
  1. RAMELTEON [Suspect]
     Active Substance: RAMELTEON
     Indication: Insomnia
     Dosage: AT 9 PM
     Route: 048
     Dates: start: 2023, end: 2023
  2. RAMELTEON [Suspect]
     Active Substance: RAMELTEON
     Dosage: AT 9 PM
     Route: 048
     Dates: start: 2023, end: 2023

REACTIONS (2)
  - Somnolence [Recovered/Resolved]
  - Therapy cessation [Recovered/Resolved]

NARRATIVE: CASE EVENT DATE: 20230101
